FAERS Safety Report 6538289-5 (Version None)
Quarter: 2010Q1

REPORT INFORMATION
  Report Type: 
  Country: None (occurrence: None)
  Receive Date: 20100114
  Receipt Date: 20100108
  Transmission Date: 20100710
  Serious: Yes (Other)
  Sender: FDA-Public Use
  Company Number: BR-B.I. PHARMACEUTICALS,INC./RIDGEFIELD-2010-DE-00103GD

PATIENT

DRUGS (5)
  1. CLONIDINE [Suspect]
     Indication: ANAESTHETIC PREMEDICATION
     Dosage: 200 MCG
     Route: 048
  2. PHENYLEPHRINE [Concomitant]
     Indication: MYDRIASIS
     Dosage: TWO DROPS OF 10%
     Route: 047
  3. POVIDONE IODINE [Concomitant]
     Indication: ANTIBIOTIC PROPHYLAXIS
     Route: 061
  4. TROPICAMIDE [Concomitant]
     Indication: MYDRIASIS
     Dosage: TWO DROPS OF 1%
     Route: 047
  5. PROXIMETACAINE [Concomitant]

REACTIONS (1)
  - HYPOTENSION [None]
